FAERS Safety Report 9707420 (Version 2)
Quarter: 2013Q4

REPORT INFORMATION
  Report Type: Spontaneous
  Country: US (occurrence: US)
  Receive Date: 20131125
  Receipt Date: 20131210
  Transmission Date: 20140711
  Serious: Yes (Other)
  Sender: FDA-Public Use
  Company Number: US-TEVA-374423USA

PATIENT
  Age: 26 Year
  Sex: Female
  Weight: 74.91 kg

DRUGS (3)
  1. PARAGARD 380A [Suspect]
     Indication: CONTRACEPTION
     Route: 015
     Dates: start: 20121023
  2. CLARITIN [Concomitant]
     Indication: SEASONAL ALLERGY
  3. TOPAMAX [Concomitant]
     Indication: HEADACHE

REACTIONS (3)
  - Device dislocation [Not Recovered/Not Resolved]
  - Pain [Not Recovered/Not Resolved]
  - Metrorrhagia [Not Recovered/Not Resolved]
